FAERS Safety Report 20390926 (Version 1)
Quarter: 2022Q1

REPORT INFORMATION
  Report Type: Spontaneous
  Country: US (occurrence: None)
  Receive Date: 20220127
  Receipt Date: 20220127
  Transmission Date: 20220424
  Serious: Yes (Death)
  Sender: FDA-Public Use
  Company Number: None

PATIENT
  Age: 91 Year
  Sex: Male

DRUGS (8)
  1. VELTASSA [Suspect]
     Active Substance: PATIROMER
     Indication: Hyperkalaemia
     Dosage: FREQUENCY : DAILY;?
     Route: 048
     Dates: start: 20200804, end: 20220122
  2. VENTOLIN [Concomitant]
     Active Substance: ALBUTEROL SULFATE
     Dates: start: 20200411, end: 20220122
  3. TAMSULOSIN [Concomitant]
     Active Substance: TAMSULOSIN
     Dates: start: 20200207, end: 20220122
  4. FINASTERIDE [Concomitant]
     Active Substance: FINASTERIDE
     Dates: start: 20190406, end: 20220122
  5. CARVEDILOL [Concomitant]
     Active Substance: CARVEDILOL
     Dates: start: 20201209, end: 20220122
  6. basaglar 100 units/ml [Concomitant]
     Dates: start: 20190315, end: 20210822
  7. ATORVASTATIN [Concomitant]
     Active Substance: ATORVASTATIN
     Dates: start: 20190604, end: 20220122
  8. AMLODIPINE [Concomitant]
     Active Substance: AMLODIPINE BESYLATE
     Dates: start: 20200923, end: 20220122

REACTIONS (2)
  - Myocardial infarction [None]
  - COVID-19 [None]

NARRATIVE: CASE EVENT DATE: 20220122
